FAERS Safety Report 8056144-9 (Version None)
Quarter: 2012Q1

REPORT INFORMATION
  Report Type: 
  Country: None (occurrence: None)
  Receive Date: 20120119
  Receipt Date: 20120116
  Transmission Date: 20120608
  Serious: No
  Sender: FDA-Public Use
  Company Number: US-PFIZER INC-2012012751

PATIENT
  Sex: Female
  Weight: 66.667 kg

DRUGS (1)
  1. ADVIL LIQUI-GELS [Suspect]
     Indication: HEADACHE
     Dosage: TWO CAPSULES OF 200 MG, UNK
     Route: 048
     Dates: start: 20120115

REACTIONS (1)
  - DRUG INEFFECTIVE [None]
